FAERS Safety Report 9661842 (Version 2)
Quarter: 2013Q4

REPORT INFORMATION
  Report Type: Spontaneous
  Country: US (occurrence: US)
  Receive Date: 20131031
  Receipt Date: 20131031
  Transmission Date: 20140711
  Serious: No
  Sender: FDA-Public Use
  Company Number: US-PURDUE-USA-2010-0048966

PATIENT
  Sex: Male

DRUGS (3)
  1. OXYCONTIN (NDA 22-272) [Suspect]
     Indication: BACK PAIN
     Dosage: 60 MG, QID
  2. OXYCONTIN (NDA 22-272) [Suspect]
     Indication: BURNING FEET SYNDROME
     Dosage: 30 MG, DAILY
     Dates: start: 20101005
  3. LORTAB                             /00607101/ [Concomitant]
     Indication: PRODUCT USED FOR UNKNOWN INDICATION
     Dosage: 10 MG, UNK

REACTIONS (11)
  - Medication residue present [Not Recovered/Not Resolved]
  - Pollakiuria [Unknown]
  - Tinnitus [Unknown]
  - Pain [Unknown]
  - Haematochezia [Unknown]
  - Inadequate analgesia [Unknown]
  - Insomnia [Unknown]
  - Nausea [Unknown]
  - Drug ineffective [Not Recovered/Not Resolved]
  - Drug effect decreased [Not Recovered/Not Resolved]
  - Product quality issue [Not Recovered/Not Resolved]
